FAERS Safety Report 7933648-8 (Version None)
Quarter: 2011Q4

REPORT INFORMATION
  Report Type: 
  Country: None (occurrence: None)
  Receive Date: 20111122
  Receipt Date: 20111110
  Transmission Date: 20120403
  Serious: Yes (Other)
  Sender: FDA-Public Use
  Company Number: PHHY2011US099015

PATIENT
  Age: 30 Year
  Sex: Male

DRUGS (11)
  1. MYCOPHENOLATE MOFETIL [Concomitant]
  2. AZATHIOPRINE [Concomitant]
  3. INTERFERON [Concomitant]
  4. CYCLOSPORINE [Suspect]
     Indication: BEHCET'S SYNDROME
  5. METHOTREXATE [Concomitant]
  6. INFLIXIMAB [Concomitant]
     Dosage: 5 MEQ/KG, UNK
  7. STEROIDS NOS [Concomitant]
  8. DACLIZUMAB [Concomitant]
  9. PREDNISONE TAB [Concomitant]
     Dosage: 30-60 MG/DAY
  10. CYCLOPHOSPHAMIDE [Concomitant]
  11. TOCILIZUMAB [Concomitant]
     Dosage: 8 MG/KG, EVERY FOUR WEEKS
     Route: 042

REACTIONS (5)
  - IGA NEPHROPATHY [None]
  - DRUG INEFFECTIVE [None]
  - UVEITIS [None]
  - TOXICITY TO VARIOUS AGENTS [None]
  - MOUTH ULCERATION [None]
